FAERS Safety Report 7451279-3 (Version None)
Quarter: 2011Q2

REPORT INFORMATION
  Report Type: 
  Country: None (occurrence: None)
  Receive Date: 20110502
  Receipt Date: 20091122
  Transmission Date: 20111010
  Serious: Yes (Death, Hospitalization, Other)
  Sender: FDA-Public Use
  Company Number: US-BAYER-201039088NA

PATIENT
  Age: 56 Year
  Sex: Male
  Weight: 97.506 kg

DRUGS (24)
  1. PROTAMINE SULFATE [Concomitant]
     Dosage: 300 MG, UNK
     Route: 042
     Dates: start: 20050219, end: 20050219
  2. METOPROLOL SUCCINATE [Concomitant]
  3. INSULIN [INSULIN] [Concomitant]
     Dosage: UNK
     Route: 042
     Dates: start: 20050219
  4. FENTANYL [Concomitant]
     Dosage: UNK
     Dates: start: 20050219
  5. PLATELETS [Concomitant]
  6. TRASYLOL [Suspect]
     Indication: MITRAL VALVE REPLACEMENT
     Dosage: 200ML PUMP PRIME
     Route: 042
     Dates: start: 20050219, end: 20050219
  7. TRASYLOL [Suspect]
     Dosage: 50 ML/HOUR
     Route: 042
     Dates: start: 20050219, end: 20050219
  8. NITROGLYCERIN [Concomitant]
     Dosage: UNK
     Route: 042
     Dates: start: 20050219
  9. VANCOMYCIN [Concomitant]
     Dosage: UNK
     Route: 042
     Dates: start: 20050219
  10. VASOPRESSIN [VASOPRESSIN] [Concomitant]
     Dosage: UNK
     Route: 042
     Dates: start: 20050219
  11. PEPCID [Concomitant]
  12. PLAVIX [Concomitant]
  13. HEPARIN [Concomitant]
  14. ACETYLSALICYLIC ACID SRT [Concomitant]
  15. LEVOPHED [Concomitant]
     Dosage: UNK
     Route: 042
     Dates: start: 20050219
  16. POTASSIUM CHLORIDE [Concomitant]
     Dosage: UNK
     Route: 042
     Dates: start: 20050219, end: 20050219
  17. IMDUR [Concomitant]
  18. LASIX [Concomitant]
     Indication: PRODUCT USED FOR UNKNOWN INDICATION
  19. DOBUTAMINE HYDROCHLORIDE [Concomitant]
  20. MILRINONE [Concomitant]
     Dosage: 2.5 MG, UNK
     Route: 042
     Dates: start: 20050219
  21. EPINEPHRINE [Concomitant]
     Dosage: UNK
     Route: 042
     Dates: start: 20050219
  22. HEPARIN [Concomitant]
     Dosage: UNK
     Route: 042
     Dates: start: 20050219, end: 20050219
  23. CLINDAMYCIN [Concomitant]
     Dosage: UNK
     Route: 042
     Dates: start: 20050219
  24. RED BLOOD CELLS [Concomitant]

REACTIONS (14)
  - INJURY [None]
  - MITRAL VALVE INCOMPETENCE [None]
  - MULTI-ORGAN FAILURE [None]
  - STRESS [None]
  - PAIN [None]
  - RENAL FAILURE [None]
  - EMOTIONAL DISTRESS [None]
  - MENTAL DISORDER [None]
  - ANXIETY [None]
  - CARDIAC FAILURE CONGESTIVE [None]
  - UNEVALUABLE EVENT [None]
  - FEAR [None]
  - RENAL IMPAIRMENT [None]
  - RENAL INJURY [None]
